FAERS Safety Report 5800777-4 (Version None)
Quarter: 2008Q3

REPORT INFORMATION
  Report Type: 
  Country: None (occurrence: None)
  Receive Date: 20080701
  Receipt Date: 20080618
  Transmission Date: 20090109
  Serious: Yes (Death)
  Sender: FDA-Public Use
  Company Number: A-CH2008-20291

PATIENT
  Age: 69 Year
  Sex: Male
  Weight: 82 kg

DRUGS (1)
  1. TRACLEER [Suspect]
     Indication: PULMONARY ARTERIAL HYPERTENSION
     Dosage: 125 MG, BID, ORAL; 62.5 MG, BID, ORAL
     Route: 048

REACTIONS (2)
  - CONDITION AGGRAVATED [None]
  - PULMONARY HYPERTENSION [None]
